APPROVED DRUG PRODUCT: DIASTAT ACUDIAL
Active Ingredient: DIAZEPAM
Strength: 10MG/2ML (5MG/ML)
Dosage Form/Route: GEL;RECTAL
Application: N020648 | Product #007 | TE Code: AB
Applicant: BAUSCH HEALTH US LLC
Approved: Sep 15, 2005 | RLD: Yes | RS: Yes | Type: RX